FAERS Safety Report 16731623 (Version 1)
Quarter: 2019Q3

REPORT INFORMATION
  Report Type: Report from Study
  Country: DE (occurrence: DE)
  Receive Date: 20190822
  Receipt Date: 20190822
  Transmission Date: 20191005
  Serious: Yes (Hospitalization)
  Sender: FDA-Public Use
  Company Number: PHHY2019DE192041

PATIENT
  Age: 59 Year
  Sex: Male
  Weight: 82 kg

DRUGS (2)
  1. LEVETIRACETAM. [Concomitant]
     Active Substance: LEVETIRACETAM
     Indication: EPILEPSY
     Dosage: 1500 MG, BID
     Route: 065
     Dates: start: 20141217
  2. OMNITROPE [Suspect]
     Active Substance: SOMATROPIN
     Indication: HYPOPITUITARISM
     Dosage: 0.2 ML, QD
     Route: 058
     Dates: end: 20190814

REACTIONS (3)
  - Hypopharyngeal cancer [Unknown]
  - Laryngeal cancer [Unknown]
  - Lip and/or oral cavity cancer [Unknown]

NARRATIVE: CASE EVENT DATE: 20190804
